FAERS Safety Report 21490453 (Version 4)
Quarter: 2022Q4

REPORT INFORMATION
  Report Type: Report from Study
  Country: US (occurrence: US)
  Receive Date: 20221021
  Receipt Date: 20221219
  Transmission Date: 20230112
  Serious: Yes (Hospitalization, Other)
  Sender: FDA-Public Use
  Company Number: US-ABBVIE-4168290

PATIENT
  Sex: Female

DRUGS (4)
  1. HUMIRA [Interacting]
     Active Substance: ADALIMUMAB
     Indication: Crohn^s disease
     Dosage: CITRATE FREE/END DATE- 2022?FORM STRENGTH: 40 MG
     Route: 058
     Dates: start: 202209
  2. DUPIXENT [Interacting]
     Active Substance: DUPILUMAB
     Indication: Product used for unknown indication
     Dosage: END DATE- 2022
     Route: 065
     Dates: start: 202209
  3. MODERNA COVID-19 VACCINE [Concomitant]
     Active Substance: ELASOMERAN
     Indication: COVID-19 immunisation
     Dosage: TIME INTERVAL: TOTAL: 1 IN ONCE
     Route: 030
  4. MODERNA COVID-19 VACCINE [Concomitant]
     Active Substance: ELASOMERAN
     Indication: COVID-19 immunisation
     Dosage: TIME INTERVAL: TOTAL: BOOSTER DOSE, 1 IN ONCE
     Route: 030

REACTIONS (7)
  - Loss of consciousness [Recovering/Resolving]
  - Drug interaction [Recovering/Resolving]
  - Pruritus [Unknown]
  - Drug ineffective [Unknown]
  - Crohn^s disease [Unknown]
  - Stem cell transplant [Recovering/Resolving]
  - Loss of consciousness [Recovered/Resolved]
